FAERS Safety Report 19841792 (Version 1)
Quarter: 2021Q3

REPORT INFORMATION
  Report Type: Report from Study
  Country: None (occurrence: DE)
  Receive Date: 20210915
  Receipt Date: 20210915
  Transmission Date: 20211014
  Serious: Yes (Hospitalization)
  Sender: FDA-Public Use
  Company Number: DE-ABBVIE-21K-062-4080196-00

PATIENT
  Sex: Female

DRUGS (1)
  1. HUMIRA [Suspect]
     Active Substance: ADALIMUMAB
     Indication: CROHN^S DISEASE
     Route: 058
     Dates: end: 2020

REACTIONS (7)
  - Inflammation [Unknown]
  - Fistula [Recovered/Resolved]
  - Body temperature increased [Unknown]
  - Cystitis [Unknown]
  - Arthralgia [Unknown]
  - Abscess [Recovered/Resolved]
  - Nasopharyngitis [Unknown]
